FAERS Safety Report 5152332-X (Version None)
Quarter: 2006Q4

REPORT INFORMATION
  Report Type: 
  Country: None (occurrence: None)
  Receive Date: 20061116
  Receipt Date: 20060929
  Transmission Date: 20070319
  Serious: Yes (Other)
  Sender: FDA-Public Use
  Company Number: 2006AP04567

PATIENT
  Age: 27383 Day
  Sex: Female
  Weight: 48 kg

DRUGS (13)
  1. IRESSA [Suspect]
     Indication: LUNG ADENOCARCINOMA
     Route: 048
     Dates: start: 20060911, end: 20060914
  2. ADEROXIN [Concomitant]
     Indication: PROPHYLAXIS
     Route: 048
     Dates: start: 20060821, end: 20060927
  3. SHAKUYAKU-KANZO-TO [Concomitant]
     Indication: PROPHYLAXIS
     Route: 048
     Dates: start: 20060821, end: 20060927
  4. SYLAZEPAM [Concomitant]
     Indication: INSOMNIA
     Route: 048
     Dates: start: 20060821, end: 20060927
  5. PERAPRIN [Concomitant]
     Route: 048
     Dates: end: 20060927
  6. LORAZEPAM [Concomitant]
     Route: 048
     Dates: end: 20061012
  7. HI-Z [Concomitant]
     Route: 048
     Dates: end: 20061013
  8. ADRIAMYCIN PFS [Concomitant]
     Dosage: INTO THORACIC CAVITY
     Dates: start: 20060619, end: 20060619
  9. PICIBANIL [Concomitant]
     Dosage: 10 KE INTO THORACIC CAVITY
     Dates: start: 20060619, end: 20060619
  10. PACLITAXEL [Concomitant]
     Dosage: 230 MG
     Dates: start: 20060713, end: 20060713
  11. PACLITAXEL [Concomitant]
     Dosage: 230 MG
     Dates: start: 20060803, end: 20060803
  12. CARBOPLATIN [Concomitant]
     Dosage: 450 MG
     Dates: start: 20060713, end: 20060713
  13. CARBOPLATIN [Concomitant]
     Dosage: 450 MG
     Dates: start: 20060803, end: 20060803

REACTIONS (5)
  - HYPOPROTEINAEMIA [None]
  - LUNG DISORDER [None]
  - MALIGNANT NEOPLASM PROGRESSION [None]
  - NON-SMALL CELL LUNG CANCER [None]
  - OXYGEN SATURATION DECREASED [None]
